FAERS Safety Report 26118721 (Version 2)
Quarter: 2025Q4

REPORT INFORMATION
  Report Type: Report from Study
  Country: EU (occurrence: EU)
  Receive Date: 20251203
  Receipt Date: 20251228
  Transmission Date: 20260117
  Serious: Yes (Other)
  Sender: ABBVIE
  Company Number: EU-ABBVIE-6570809

PATIENT

DRUGS (4)
  1. VENETOCLAX [Suspect]
     Active Substance: VENETOCLAX
     Indication: Chronic lymphocytic leukaemia
     Route: 048
  2. IBRUTINIB [Suspect]
     Active Substance: IBRUTINIB
     Indication: Chronic lymphocytic leukaemia
     Route: 048
  3. ACALABRUTINIB [Suspect]
     Active Substance: ACALABRUTINIB
     Indication: Chronic lymphocytic leukaemia
     Route: 065
  4. OBINUTUZUMAB [Suspect]
     Active Substance: OBINUTUZUMAB
     Indication: Chronic lymphocytic leukaemia
     Route: 065

REACTIONS (9)
  - Cardiotoxicity [Unknown]
  - Atrial fibrillation [Unknown]
  - Therapeutic product effect decreased [Unknown]
  - Drug tolerance decreased [Unknown]
  - Drug interaction [Unknown]
  - Disease risk factor [Unknown]
  - Adverse drug reaction [Unknown]
  - Tumour lysis syndrome [Unknown]
  - Treatment noncompliance [Unknown]
